FAERS Safety Report 17665942 (Version 1)
Quarter: 2020Q2

REPORT INFORMATION
  Report Type: Spontaneous
  Country: US (occurrence: US)
  Receive Date: 20200413
  Receipt Date: 20200413
  Transmission Date: 20200713
  Serious: No
  Sender: FDA-Public Use
  Company Number: None

PATIENT
  Age: 9 Year
  Sex: Female

DRUGS (3)
  1. EVEROLIMUS TAB 5MG [Suspect]
     Active Substance: EVEROLIMUS
     Indication: BRAIN NEOPLASM MALIGNANT
     Route: 048
     Dates: start: 202004
  2. FASLODEX [Concomitant]
     Active Substance: FULVESTRANT
  3. PIQRAY [Concomitant]
     Active Substance: ALPELISIB

REACTIONS (2)
  - Off label use [None]
  - Brain neoplasm malignant [None]

NARRATIVE: CASE EVENT DATE: 20200413
